FAERS Safety Report 5782684-9 (Version None)
Quarter: 2008Q2

REPORT INFORMATION
  Report Type: 
  Country: None (occurrence: None)
  Receive Date: 20080619
  Receipt Date: 20080612
  Transmission Date: 20081010
  Serious: Yes (Other)
  Sender: FDA-Public Use
  Company Number: 2008SP009947

PATIENT
  Age: 49 Year
  Sex: Male
  Weight: 113.3993 kg

DRUGS (5)
  1. PEG-INTRON [Suspect]
     Indication: HEPATITIS C
     Dosage: 150 MCG;QW;SC
     Route: 058
     Dates: start: 20080110
  2. RIBAVIRIN [Suspect]
     Indication: HEPATITIS C
     Dosage: 800 MG;QD;PO
     Route: 048
     Dates: start: 20080110
  3. LITHIUM CARBONATE [Concomitant]
  4. WELLBUTRIN [Concomitant]
  5. ZYPREXA [Concomitant]

REACTIONS (12)
  - CONDITION AGGRAVATED [None]
  - DEPRESSION [None]
  - DIARRHOEA [None]
  - INFLUENZA [None]
  - INJECTION SITE ERYTHEMA [None]
  - INSOMNIA [None]
  - MANIA [None]
  - MOOD SWINGS [None]
  - NAUSEA [None]
  - PERICARDITIS [None]
  - SUICIDAL IDEATION [None]
  - WEIGHT DECREASED [None]
